FAERS Safety Report 7129933-2 (Version None)
Quarter: 2010Q4

REPORT INFORMATION
  Report Type: 
  Country: None (occurrence: None)
  Receive Date: 20101130
  Receipt Date: 20100603
  Transmission Date: 20110411
  Serious: No
  Sender: FDA-Public Use
  Company Number: US-AMGEN-KDL416134

PATIENT

DRUGS (1)
  1. ARANESP [Suspect]
     Indication: MYELODYSPLASTIC SYNDROME
     Dosage: 150 A?G, UNK
     Dates: start: 20100518

REACTIONS (3)
  - BONE PAIN [None]
  - DIARRHOEA [None]
  - DIZZINESS [None]
